FAERS Safety Report 16716310 (Version 1)
Quarter: 2019Q4

REPORT INFORMATION
  Report Type: Spontaneous
  Country: US (occurrence: US)
  Receive Date: 20190818
  Receipt Date: 20190818
  Transmission Date: 20200122
  Serious: Yes (Disabling)
  Sender: FDA-Public Use
  Company Number: None

PATIENT
  Age: 60 Year
  Sex: Female
  Weight: 72 kg

DRUGS (8)
  1. GLYZAMBY [Concomitant]
  2. LOZARTAN [Concomitant]
  3. CLONAZEPAM 0.5 MG TABLET [Suspect]
     Active Substance: CLONAZEPAM
     Indication: ANXIETY
     Dosage: ?          QUANTITY:1 TABLET(S);?
     Route: 048
     Dates: start: 20190810, end: 20190818
  4. HUMULIN NOS [Concomitant]
     Active Substance: INSULIN HUMAN
  5. CLONAZEPAM 0.5 MG TABLET [Suspect]
     Active Substance: CLONAZEPAM
     Indication: PANIC ATTACK
     Dosage: ?          QUANTITY:1 TABLET(S);?
     Route: 048
     Dates: start: 20190810, end: 20190818
  6. METFORMIN [Concomitant]
     Active Substance: METFORMIN HYDROCHLORIDE
  7. OLANZAPINE. [Concomitant]
     Active Substance: OLANZAPINE
  8. ATORVASTATIN [Concomitant]
     Active Substance: ATORVASTATIN

REACTIONS (9)
  - Anxiety [None]
  - Asthenia [None]
  - Heart rate abnormal [None]
  - Somnolence [None]
  - Dizziness [None]
  - Disturbance in attention [None]
  - Product substitution issue [None]
  - Muscle tightness [None]
  - Paraesthesia [None]

NARRATIVE: CASE EVENT DATE: 20190810
